FAERS Safety Report 12367390 (Version 2)
Quarter: 2016Q2

REPORT INFORMATION
  Report Type: Spontaneous
  Country: US (occurrence: US)
  Receive Date: 20160513
  Receipt Date: 20160620
  Transmission Date: 20160815
  Serious: Yes (Other)
  Sender: FDA-Public Use
  Company Number: US-PFIZER INC-2016249801

PATIENT
  Age: 59 Year
  Sex: Female
  Weight: 63.5 kg

DRUGS (4)
  1. GABAPENTIN. [Suspect]
     Active Substance: GABAPENTIN
     Indication: COMPLEX REGIONAL PAIN SYNDROME
  2. GABAPENTIN. [Suspect]
     Active Substance: GABAPENTIN
     Indication: SCAR
  3. GABAPENTIN. [Suspect]
     Active Substance: GABAPENTIN
     Indication: SPINAL ROD INSERTION
     Dosage: 1200 MG, 1X/DAY
  4. GABAPENTIN. [Suspect]
     Active Substance: GABAPENTIN
     Indication: NERVE INJURY

REACTIONS (4)
  - Abdominal distension [Unknown]
  - Abdominal pain [Unknown]
  - Gastric haemorrhage [Unknown]
  - Product use issue [Unknown]
